FAERS Safety Report 12823297 (Version 1)
Quarter: 2016Q4

REPORT INFORMATION
  Report Type: Spontaneous
  Country: US (occurrence: US)
  Receive Date: 20161006
  Receipt Date: 20161006
  Transmission Date: 20170207
  Serious: No
  Sender: FDA-Public Use
  Company Number: None

PATIENT
  Age: 76 Year
  Sex: Female

DRUGS (4)
  1. IBRANCE [Suspect]
     Active Substance: PALBOCICLIB
     Indication: DIABETIC NEUROPATHY
  2. IBRANCE [Suspect]
     Active Substance: PALBOCICLIB
     Indication: TYPE 2 DIABETES MELLITUS
  3. IBRANCE [Suspect]
     Active Substance: PALBOCICLIB
     Indication: METASTASES TO BONE
  4. IBRANCE [Suspect]
     Active Substance: PALBOCICLIB
     Indication: BREAST CANCER FEMALE

REACTIONS (4)
  - Swelling [None]
  - Pain [None]
  - Fall [None]
  - Impaired healing [None]

NARRATIVE: CASE EVENT DATE: 20161006
